FAERS Safety Report 8759541 (Version 2)
Quarter: 2012Q4

REPORT INFORMATION
  Report Type: 
  Country: US (occurrence: US)
  Receive Date: 20120829
  Receipt Date: 20120905
  Transmission Date: 20130627
  Serious: Yes (Other)
  Sender: FDA-Public Use
  Company Number: US-ALEXION PHARMACEUTICALS INC.-A201201594

PATIENT
  Age: 33 Year
  Sex: Male
  Weight: 102.95 kg

DRUGS (4)
  1. SOLIRIS 300MG [Suspect]
     Indication: PAROXYSMAL NOCTURNAL HAEMOGLOBINURIA
     Dosage: 900 mg, q2w
     Route: 042
  2. CYCLOSPORINE [Concomitant]
     Dosage: 200 mg, bid
     Route: 048
  3. PREDNISONE [Concomitant]
     Dosage: 10 mg, qod
     Route: 048
  4. ATG [Concomitant]

REACTIONS (4)
  - Haematocrit decreased [Unknown]
  - Haemoglobin decreased [Unknown]
  - Reticulocyte count increased [Unknown]
  - Mean cell volume increased [Unknown]
